FAERS Safety Report 4719966-5 (Version None)
Quarter: 2005Q3

REPORT INFORMATION
  Report Type: 
  Country: None (occurrence: None)
  Receive Date: 20050721
  Receipt Date: 20050216
  Transmission Date: 20060218
  Serious: No
  Sender: FDA-Public Use
  Company Number: US-GLAXOSMITHKLINE-A0545913A

PATIENT
  Age: 71 Year
  Sex: Male

DRUGS (9)
  1. AVANDIA [Suspect]
     Dosage: 4MG PER DAY
     Route: 048
     Dates: start: 20050210
  2. GLYBURIDE [Concomitant]
  3. BUMETANIDE [Concomitant]
  4. FELODIPINE [Concomitant]
  5. HYDROCHLOROTHIAZIDE [Concomitant]
  6. IRBESARTAN [Concomitant]
  7. LORATADINE [Concomitant]
  8. NIACIN [Concomitant]
  9. LITHIUM CARBONATE [Concomitant]

REACTIONS (1)
  - BLOOD GLUCOSE INCREASED [None]
